FAERS Safety Report 20726979 (Version 8)
Quarter: 2023Q2

REPORT INFORMATION
  Report Type: Spontaneous
  Country: US (occurrence: US)
  Receive Date: 20220419
  Receipt Date: 20230504
  Transmission Date: 20230722
  Serious: No
  Sender: FDA-Public Use
  Company Number: US-PFIZER INC-202101803300

PATIENT
  Age: 68 Year
  Sex: Female

DRUGS (3)
  1. IBRANCE [Suspect]
     Active Substance: PALBOCICLIB
     Dosage: 125 MG
     Dates: start: 20211024
  2. IBRANCE [Suspect]
     Active Substance: PALBOCICLIB
     Dosage: 125 MG
     Dates: start: 20220406
  3. IBRANCE [Suspect]
     Active Substance: PALBOCICLIB
     Dosage: 125 MG
     Dates: start: 20230401

REACTIONS (13)
  - Muscle spasms [Unknown]
  - Hypoaesthesia [Unknown]
  - Condition aggravated [Unknown]
  - Fatigue [Unknown]
  - Weight increased [Unknown]
  - Hyperphagia [Unknown]
  - Gait inability [Unknown]
  - Urinary tract infection [Not Recovered/Not Resolved]
  - Incontinence [Unknown]
  - Product dose omission issue [Unknown]
  - Extra dose administered [Unknown]
  - Full blood count abnormal [Unknown]
  - Blood test abnormal [Unknown]
